FAERS Safety Report 5208027-7 (Version None)
Quarter: 2007Q1

REPORT INFORMATION
  Report Type: 
  Country: None (occurrence: None)
  Receive Date: 20070115
  Receipt Date: 20070110
  Transmission Date: 20070707
  Serious: Yes (Hospitalization)
  Sender: FDA-Public Use
  Company Number: CA-BAYER-200614271GDS

PATIENT
  Age: 59 Year
  Sex: Male
  Weight: 78 kg

DRUGS (8)
  1. NEXAVAR [Suspect]
     Indication: METASTATIC RENAL CELL CARCINOMA
     Dosage: TOTAL DAILY DOSE: 200 MG
     Route: 048
     Dates: start: 20060904, end: 20060910
  2. NEXAVAR [Suspect]
     Dosage: TOTAL DAILY DOSE: 200 MG
     Route: 048
     Dates: start: 20060911, end: 20060901
  3. NEXAVAR [Suspect]
     Dosage: TOTAL DAILY DOSE: 800 MG
     Route: 048
  4. NEXAVAR [Suspect]
     Dosage: TOTAL DAILY DOSE: 400 MG
     Route: 048
     Dates: start: 20060913, end: 20060916
  5. HYDROCHLOROTHIAZIDE [Concomitant]
     Indication: HYPERTENSION
     Route: 048
  6. PHOSPHATE [Concomitant]
     Indication: HYPOPHOSPHATAEMIA
     Dosage: TOTAL DAILY DOSE: 1500 MG
     Route: 048
  7. FRAGMIN [Concomitant]
     Indication: PULMONARY EMBOLISM
     Route: 058
  8. ELTROXIN [Concomitant]
     Indication: HYPOTHYROIDISM
     Route: 048

REACTIONS (6)
  - DEHYDRATION [None]
  - DYSPHONIA [None]
  - FALL [None]
  - HYPERTENSION [None]
  - PALMAR-PLANTAR ERYTHRODYSAESTHESIA SYNDROME [None]
  - RASH [None]
